FAERS Safety Report 10684546 (Version 2)
Quarter: 2016Q3

REPORT INFORMATION
  Report Type: Spontaneous
  Country: FR (occurrence: FR)
  Receive Date: 20141231
  Receipt Date: 20160927
  Transmission Date: 20161109
  Serious: Yes (Hospitalization)
  Sender: FDA-Public Use
  Company Number: FR-UCBSA-2014023020

PATIENT
  Age: 54 Year
  Sex: Male
  Weight: 52 kg

DRUGS (3)
  1. DI-HYDAN [Suspect]
     Active Substance: PHENYTOIN
     Indication: EPILEPSY
     Dosage: 300 MG, ONCE DAILY (QD)
     Route: 048
     Dates: end: 20140701
  2. KEPPRA [Suspect]
     Active Substance: LEVETIRACETAM
     Indication: EPILEPSY
     Dosage: 500 MG, 4X/DAY (QID)
     Route: 048
  3. VIMPAT [Suspect]
     Active Substance: LACOSAMIDE
     Indication: EPILEPSY
     Dosage: 200 MG, 2X/DAY (BID)
     Route: 048

REACTIONS (2)
  - Cerebellar ataxia [Recovered/Resolved with Sequelae]
  - Cerebellar syndrome [Recovered/Resolved with Sequelae]

NARRATIVE: CASE EVENT DATE: 20140701
